FAERS Safety Report 14291108 (Version 1)
Quarter: 2017Q4

REPORT INFORMATION
  Report Type: Spontaneous
  Country: AU (occurrence: AU)
  Receive Date: 20171215
  Receipt Date: 20171215
  Transmission Date: 20180321
  Serious: Yes (Hospitalization, Other)
  Sender: FDA-Public Use
  Company Number: AU-NOVOPROD-576634

PATIENT
  Sex: Female

DRUGS (3)
  1. ACTRAPID [Suspect]
     Active Substance: INSULIN HUMAN
     Indication: DIABETES MELLITUS
     Dosage: USED WHILST IN HOSPITAL FOR KNEE OPERATION
     Route: 065
  2. HUMALOG [Suspect]
     Active Substance: INSULIN LISPRO
     Indication: DIABETES MELLITUS
     Dosage: UNK
     Route: 065
  3. PROTAPHANE [Suspect]
     Active Substance: INSULIN HUMAN
     Indication: DIABETES MELLITUS
     Dosage: UNK
     Route: 058

REACTIONS (5)
  - Blood glucose decreased [Unknown]
  - Headache [Unknown]
  - Drug effect faster than expected [Unknown]
  - Drug hypersensitivity [Unknown]
  - Cerebrovascular accident [Unknown]
